FAERS Safety Report 4918704-0 (Version None)
Quarter: 2006Q1

REPORT INFORMATION
  Report Type: 
  Country: None (occurrence: None)
  Receive Date: 20060216
  Receipt Date: 20060207
  Transmission Date: 20060701
  Serious: Yes (Other)
  Sender: FDA-Public Use
  Company Number: HQWYE736509FEB06

PATIENT
  Age: 22 Year
  Sex: Male

DRUGS (1)
  1. EFFEXOR XR [Suspect]
     Dates: start: 20060124

REACTIONS (1)
  - SELF-INJURIOUS IDEATION [None]
